FAERS Safety Report 7401114-4 (Version None)
Quarter: 2011Q1

REPORT INFORMATION
  Report Type: 
  Country: None (occurrence: None)
  Receive Date: 20110329
  Receipt Date: 20110323
  Transmission Date: 20110831
  Serious: Yes (Hospitalization)
  Sender: FDA-Public Use
  Company Number: 2010SP064708

PATIENT
  Age: 63 Year
  Sex: Male
  Weight: 113.5 kg

DRUGS (25)
  1. RED BLOOD CELLS [Concomitant]
  2. RED BLOOD CELLS [Concomitant]
  3. BOCEPREVIR [Suspect]
     Indication: HEPATITIS C
     Dosage: 800 MG;TID;PO; 600 MG;TID;PO
     Route: 048
     Dates: start: 20100914
  4. LYRICA [Concomitant]
  5. EPREX [Concomitant]
  6. HYDRASENSE [Concomitant]
  7. POLYSPORIN OINTMENT [Concomitant]
  8. IBUPROFEN [Concomitant]
  9. ASPIRIN [Concomitant]
  10. ASCORBIC ACID [Concomitant]
  11. RED BLOOD CELLS [Concomitant]
  12. TECTA [Concomitant]
  13. TECTA [Concomitant]
  14. RIBAVIRIN [Suspect]
     Indication: HEPATITIS C
     Dosage: 1400 MG;QD;PO; 800 MG;QD;PO
     Route: 048
     Dates: start: 20100817
  15. HYDROMORPHONE [Concomitant]
  16. IMOVANE [Concomitant]
  17. EPREX [Concomitant]
  18. CITALOPRAM HYDROBROMIDE [Concomitant]
  19. LASIX [Concomitant]
  20. LORAZEPAM [Concomitant]
  21. OXYGEN [Concomitant]
  22. SPIRONOLACTIONE [Concomitant]
  23. PEGINTERFERON ALFA-2B [Suspect]
     Indication: HEPATITIS C
     Dosage: 150 MCG;QW;SC; 120 MCG;QW;SC
     Route: 058
     Dates: start: 20100817
  24. DEXAMETHASONE [Concomitant]
  25. NADOLOL [Concomitant]

REACTIONS (6)
  - ASCITES [None]
  - SCROTAL SWELLING [None]
  - BLOOD ALBUMIN DECREASED [None]
  - FLUID RETENTION [None]
  - OEDEMA [None]
  - ANAEMIA [None]
